FAERS Safety Report 9335863 (Version 1)
Quarter: 2013Q2

REPORT INFORMATION
  Report Type: Report from Study
  Country: AT (occurrence: AT)
  Receive Date: 20130607
  Receipt Date: 20130607
  Transmission Date: 20140414
  Serious: Yes (Other)
  Sender: FDA-Public Use
  Company Number: AT-ROCHE-1232130

PATIENT
  Age: 53 Year
  Sex: Male
  Weight: 53 kg

DRUGS (4)
  1. RIBAVIRIN [Suspect]
     Indication: HEPATITIS C
     Route: 065
     Dates: start: 20120413, end: 20121002
  2. RIBAVIRIN [Suspect]
     Route: 065
     Dates: start: 20121002, end: 20130311
  3. PEG-INTERFERON ALFA 2A [Suspect]
     Indication: HEPATITIS C
     Route: 065
     Dates: start: 20120413, end: 20130311
  4. INCIVO [Suspect]
     Indication: HEPATITIS C
     Route: 065
     Dates: start: 20120413, end: 20120629

REACTIONS (2)
  - Pancytopenia [Unknown]
  - Rash generalised [Unknown]
